FAERS Safety Report 9413664 (Version 1)
Quarter: 2013Q2

REPORT INFORMATION
  Report Type: Spontaneous
  Country: JP (occurrence: None)
  Receive Date: 20130522
  Receipt Date: 20130522
  Transmission Date: 20140414
  Serious: Yes (Other)
  Sender: FDA-Public Use
  Company Number: SPI201300230

PATIENT
  Age: 31 Year
  Sex: 0

DRUGS (2)
  1. AMITIZA (LUBIPROSTONE) CAPSULE, 24MCG [Suspect]
     Indication: CONSTIPATION
     Route: 048
     Dates: start: 20130402, end: 20130403
  2. MARVELON (DESOGESTREL, ETHINYLESTRADIOL) [Concomitant]

REACTIONS (3)
  - Drug hypersensitivity [None]
  - Dyspnoea [None]
  - Cough [None]
